FAERS Safety Report 22075136 (Version 1)
Quarter: 2023Q1

REPORT INFORMATION
  Report Type: Spontaneous
  Country: US (occurrence: None)
  Receive Date: 20230308
  Receipt Date: 20230308
  Transmission Date: 20230418
  Serious: No
  Sender: FDA-Public Use
  Company Number: None

PATIENT

DRUGS (2)
  1. MULTRYS [Suspect]
     Active Substance: CUPRIC SULFATE\MANGANESE SULFATE\SELENIOUS ACID\ZINC SULFATE
  2. DEXMEDETOMIDINE [Suspect]
     Active Substance: DEXMEDETOMIDINE

REACTIONS (4)
  - Product label confusion [None]
  - Product packaging confusion [None]
  - Product appearance confusion [None]
  - Wrong product stored [None]
